FAERS Safety Report 14273642 (Version 1)
Quarter: 2017Q4

REPORT INFORMATION
  Report Type: Spontaneous
  Country: SE (occurrence: SE)
  Receive Date: 20171211
  Receipt Date: 20171211
  Transmission Date: 20180321
  Serious: Yes (Disabling)
  Sender: FDA-Public Use
  Company Number: SE-OTSUKA-2017_019758

PATIENT
  Age: 14 Year
  Sex: Female
  Weight: 48 kg

DRUGS (4)
  1. LERGIGAN (PROMETHAZINE HYDROCHLORIDE) [Concomitant]
     Active Substance: PROMETHAZINE HYDROCHLORIDE
     Indication: PRODUCT USED FOR UNKNOWN INDICATION
     Dosage: UNK
     Route: 065
     Dates: start: 201610
  2. ABILIFY [Suspect]
     Active Substance: ARIPIPRAZOLE
     Indication: OBSESSIVE-COMPULSIVE DISORDER
     Dosage: 7 MG, UNK
     Route: 048
     Dates: start: 20160610, end: 20170610
  3. SERTRALINE [Concomitant]
     Active Substance: SERTRALINE HYDROCHLORIDE
     Indication: PRODUCT USED FOR UNKNOWN INDICATION
     Dosage: UNK
     Route: 065
     Dates: start: 20150920
  4. SERTRALINE [Concomitant]
     Active Substance: SERTRALINE HYDROCHLORIDE
     Indication: PRODUCT USED FOR UNKNOWN INDICATION
     Dosage: UNK
     Route: 065
     Dates: start: 20150920

REACTIONS (3)
  - Product use in unapproved indication [Unknown]
  - Prescribed overdose [Unknown]
  - Peroneal nerve palsy [Recovered/Resolved with Sequelae]

NARRATIVE: CASE EVENT DATE: 20161015
